FAERS Safety Report 6641982-7 (Version None)
Quarter: 2010Q1

REPORT INFORMATION
  Report Type: 
  Country: None (occurrence: None)
  Receive Date: 20100319
  Receipt Date: 20100304
  Transmission Date: 20100710
  Serious: Yes (Other)
  Sender: FDA-Public Use
  Company Number: CA-JNJFOC-20100302947

PATIENT
  Age: 82 Year
  Sex: Male

DRUGS (5)
  1. GALANTAMINE HYDROBROMIDE [Suspect]
     Indication: DRUG USE FOR UNKNOWN INDICATION
     Route: 065
  2. PULMICORT [Concomitant]
     Route: 065
  3. ATROVENT [Concomitant]
     Route: 065
  4. COZAAR [Concomitant]
     Route: 065
  5. VENTOLIN [Concomitant]
     Route: 065

REACTIONS (4)
  - GASTROINTESTINAL DISORDER [None]
  - MEDICATION ERROR [None]
  - NAUSEA [None]
  - VOMITING [None]
